FAERS Safety Report 24628393 (Version 4)
Quarter: 2025Q1

REPORT INFORMATION
  Report Type: Spontaneous
  Country: JP (occurrence: JP)
  Receive Date: 20241117
  Receipt Date: 20250107
  Transmission Date: 20250408
  Serious: Yes (Other)
  Sender: ALEXION PHARMACEUTICALS
  Company Number: JP-ASTRAZENECA-240084036_011620_P_1

PATIENT
  Age: 71 Year
  Weight: 63 kg

DRUGS (76)
  1. LYNPARZA [Suspect]
     Active Substance: OLAPARIB
     Indication: Ovarian cancer
     Dosage: 300 MILLIGRAM, BID
  2. LYNPARZA [Suspect]
     Active Substance: OLAPARIB
     Dosage: 300 MILLIGRAM, BID
     Route: 048
  3. LYNPARZA [Suspect]
     Active Substance: OLAPARIB
     Dosage: 300 MILLIGRAM, BID
  4. LYNPARZA [Suspect]
     Active Substance: OLAPARIB
     Dosage: 300 MILLIGRAM, BID
     Route: 048
  5. LYNPARZA [Suspect]
     Active Substance: OLAPARIB
     Dosage: 300 MILLIGRAM, BID
  6. LYNPARZA [Suspect]
     Active Substance: OLAPARIB
     Dosage: 300 MILLIGRAM, BID
     Route: 048
  7. LYNPARZA [Suspect]
     Active Substance: OLAPARIB
     Dosage: 300 MILLIGRAM, BID
  8. LYNPARZA [Suspect]
     Active Substance: OLAPARIB
     Dosage: 300 MILLIGRAM, BID
     Route: 048
  9. ROSUVASTATIN [Concomitant]
     Active Substance: ROSUVASTATIN
     Indication: Diabetes mellitus
  10. ROSUVASTATIN [Concomitant]
     Active Substance: ROSUVASTATIN
     Indication: Dyslipidaemia
     Route: 048
  11. ROSUVASTATIN [Concomitant]
     Active Substance: ROSUVASTATIN
  12. ROSUVASTATIN [Concomitant]
     Active Substance: ROSUVASTATIN
     Route: 048
  13. ROSUVASTATIN [Concomitant]
     Active Substance: ROSUVASTATIN
  14. ROSUVASTATIN [Concomitant]
     Active Substance: ROSUVASTATIN
     Route: 048
  15. ROSUVASTATIN [Concomitant]
     Active Substance: ROSUVASTATIN
  16. ROSUVASTATIN [Concomitant]
     Active Substance: ROSUVASTATIN
     Route: 048
  17. METGLUCO [Concomitant]
     Active Substance: METFORMIN HYDROCHLORIDE
     Indication: Diabetes mellitus
  18. METGLUCO [Concomitant]
     Active Substance: METFORMIN HYDROCHLORIDE
     Route: 048
  19. METGLUCO [Concomitant]
     Active Substance: METFORMIN HYDROCHLORIDE
  20. METGLUCO [Concomitant]
     Active Substance: METFORMIN HYDROCHLORIDE
     Route: 048
  21. METGLUCO [Concomitant]
     Active Substance: METFORMIN HYDROCHLORIDE
  22. METGLUCO [Concomitant]
     Active Substance: METFORMIN HYDROCHLORIDE
     Route: 048
  23. METGLUCO [Concomitant]
     Active Substance: METFORMIN HYDROCHLORIDE
  24. METGLUCO [Concomitant]
     Active Substance: METFORMIN HYDROCHLORIDE
     Route: 048
  25. HUMALOG [Concomitant]
     Active Substance: INSULIN LISPRO
     Indication: Diabetes mellitus
  26. HUMALOG [Concomitant]
     Active Substance: INSULIN LISPRO
     Route: 058
  27. HUMALOG [Concomitant]
     Active Substance: INSULIN LISPRO
  28. HUMALOG [Concomitant]
     Active Substance: INSULIN LISPRO
     Route: 058
  29. HUMALOG [Concomitant]
     Active Substance: INSULIN LISPRO
  30. HUMALOG [Concomitant]
     Active Substance: INSULIN LISPRO
     Route: 058
  31. HUMALOG [Concomitant]
     Active Substance: INSULIN LISPRO
  32. HUMALOG [Concomitant]
     Active Substance: INSULIN LISPRO
     Route: 058
  33. LANTUS [Concomitant]
     Active Substance: INSULIN GLARGINE
     Indication: Diabetes mellitus
  34. LANTUS [Concomitant]
     Active Substance: INSULIN GLARGINE
     Route: 058
  35. LANTUS [Concomitant]
     Active Substance: INSULIN GLARGINE
  36. LANTUS [Concomitant]
     Active Substance: INSULIN GLARGINE
     Route: 058
  37. LANTUS [Concomitant]
     Active Substance: INSULIN GLARGINE
  38. LANTUS [Concomitant]
     Active Substance: INSULIN GLARGINE
     Route: 058
  39. LANTUS [Concomitant]
     Active Substance: INSULIN GLARGINE
  40. LANTUS [Concomitant]
     Active Substance: INSULIN GLARGINE
     Route: 058
  41. ELIQUIS [Concomitant]
     Active Substance: APIXABAN
     Indication: Pulmonary embolism
  42. ELIQUIS [Concomitant]
     Active Substance: APIXABAN
     Route: 048
  43. ELIQUIS [Concomitant]
     Active Substance: APIXABAN
  44. ELIQUIS [Concomitant]
     Active Substance: APIXABAN
     Route: 048
  45. ELIQUIS [Concomitant]
     Active Substance: APIXABAN
  46. ELIQUIS [Concomitant]
     Active Substance: APIXABAN
     Route: 048
  47. ELIQUIS [Concomitant]
     Active Substance: APIXABAN
  48. ELIQUIS [Concomitant]
     Active Substance: APIXABAN
     Route: 048
  49. HERBALS [Concomitant]
     Active Substance: HERBALS
     Indication: Constipation
  50. HERBALS [Concomitant]
     Active Substance: HERBALS
     Route: 048
  51. HERBALS [Concomitant]
     Active Substance: HERBALS
  52. HERBALS [Concomitant]
     Active Substance: HERBALS
     Route: 048
  53. MAGNESIUM OXIDE [Concomitant]
     Active Substance: MAGNESIUM OXIDE
     Indication: Constipation
  54. MAGNESIUM OXIDE [Concomitant]
     Active Substance: MAGNESIUM OXIDE
     Route: 048
  55. MAGNESIUM OXIDE [Concomitant]
     Active Substance: MAGNESIUM OXIDE
  56. MAGNESIUM OXIDE [Concomitant]
     Active Substance: MAGNESIUM OXIDE
     Route: 048
  57. MAGNESIUM OXIDE [Concomitant]
     Active Substance: MAGNESIUM OXIDE
  58. MAGNESIUM OXIDE [Concomitant]
     Active Substance: MAGNESIUM OXIDE
     Route: 048
  59. MAGNESIUM OXIDE [Concomitant]
     Active Substance: MAGNESIUM OXIDE
  60. MAGNESIUM OXIDE [Concomitant]
     Active Substance: MAGNESIUM OXIDE
     Route: 048
  61. PREGABALIN [Concomitant]
     Active Substance: PREGABALIN
     Indication: Neuropathy peripheral
  62. PREGABALIN [Concomitant]
     Active Substance: PREGABALIN
     Route: 048
  63. PREGABALIN [Concomitant]
     Active Substance: PREGABALIN
  64. PREGABALIN [Concomitant]
     Active Substance: PREGABALIN
     Route: 048
  65. PREGABALIN [Concomitant]
     Active Substance: PREGABALIN
  66. PREGABALIN [Concomitant]
     Active Substance: PREGABALIN
     Route: 048
  67. PREGABALIN [Concomitant]
     Active Substance: PREGABALIN
  68. PREGABALIN [Concomitant]
     Active Substance: PREGABALIN
     Route: 048
  69. METOCLOPRAMIDE [Concomitant]
     Active Substance: METOCLOPRAMIDE
     Indication: Nausea
  70. METOCLOPRAMIDE [Concomitant]
     Active Substance: METOCLOPRAMIDE
     Route: 048
  71. METOCLOPRAMIDE [Concomitant]
     Active Substance: METOCLOPRAMIDE
  72. METOCLOPRAMIDE [Concomitant]
     Active Substance: METOCLOPRAMIDE
     Route: 048
  73. METOCLOPRAMIDE [Concomitant]
     Active Substance: METOCLOPRAMIDE
  74. METOCLOPRAMIDE [Concomitant]
     Active Substance: METOCLOPRAMIDE
     Route: 048
  75. METOCLOPRAMIDE [Concomitant]
     Active Substance: METOCLOPRAMIDE
  76. METOCLOPRAMIDE [Concomitant]
     Active Substance: METOCLOPRAMIDE
     Route: 048

REACTIONS (1)
  - Renal disorder [Recovering/Resolving]
